FAERS Safety Report 16923245 (Version 1)
Quarter: 2019Q4

REPORT INFORMATION
  Report Type: Spontaneous
  Country: US (occurrence: US)
  Receive Date: 20191016
  Receipt Date: 20191016
  Transmission Date: 20200122
  Serious: Yes (Other)
  Sender: FDA-Public Use
  Company Number: US-AMGEN INC.-USASP2019169572

PATIENT
  Sex: Female

DRUGS (1)
  1. AIMOVIG [Suspect]
     Active Substance: ERENUMAB-AOOE
     Indication: MIGRAINE
     Dosage: UNK
     Route: 065

REACTIONS (5)
  - Adverse drug reaction [Recovering/Resolving]
  - Therapeutic product effect decreased [Unknown]
  - Anxiety [Recovering/Resolving]
  - Migraine [Recovering/Resolving]
  - Neck pain [Recovering/Resolving]
